FAERS Safety Report 6566146-7 (Version None)
Quarter: 2010Q1

REPORT INFORMATION
  Report Type: 
  Country: None (occurrence: None)
  Receive Date: 20100202
  Receipt Date: 20100128
  Transmission Date: 20100710
  Serious: Yes (Life-Threatening, Hospitalization, Other)
  Sender: FDA-Public Use
  Company Number: GB-JNJFOC-20100111581

PATIENT
  Age: 27 Year
  Sex: Male

DRUGS (4)
  1. RISPERIDONE [Suspect]
     Indication: SCHIZOPHRENIA
     Route: 030
  2. RISPERIDONE [Suspect]
     Indication: DEPRESSION
     Route: 030
  3. OLANZAPINE [Suspect]
     Indication: SCHIZOPHRENIA
     Route: 048
  4. OLANZAPINE [Suspect]
     Indication: DEPRESSION
     Route: 048

REACTIONS (1)
  - DIABETIC KETOACIDOSIS [None]
